FAERS Safety Report 10449928 (Version 1)
Quarter: 2014Q3

REPORT INFORMATION
  Report Type: Spontaneous
  Country: US (occurrence: None)
  Receive Date: 20140911
  Receipt Date: 20140911
  Transmission Date: 20150326
  Serious: Yes (Life-Threatening)
  Sender: FDA-Public Use
  Company Number: None

PATIENT
  Age: 17 Year
  Sex: Female
  Weight: 58.97 kg

DRUGS (1)
  1. ATIVAN [Suspect]
     Active Substance: LORAZEPAM
     Indication: ANXIETY
     Dosage: 1 PILL AS NEEDED
     Dates: start: 201304, end: 201409

REACTIONS (13)
  - Mental status changes [None]
  - Quality of life decreased [None]
  - Drug withdrawal syndrome [None]
  - Insomnia [None]
  - Anger [None]
  - Anxiety [None]
  - Tremor [None]
  - Suicidal ideation [None]
  - Emotional disorder [None]
  - Headache [None]
  - Drug abuser [None]
  - Vomiting [None]
  - Drug dependence [None]
